FAERS Safety Report 7043697-2 (Version None)
Quarter: 2010Q3

REPORT INFORMATION
  Report Type: 
  Country: None (occurrence: None)
  Receive Date: 20100929
  Receipt Date: 20100614
  Transmission Date: 20110219
  Serious: No
  Sender: FDA-Public Use
  Company Number: US-WYE-H16003910

PATIENT
  Age: 75 Year
  Sex: Female
  Weight: 72.64 kg

DRUGS (2)
  1. PRISTIQ [Suspect]
     Indication: DEPRESSION
     Dosage: 50 MG 1X PER 1 DAY, ORAL
     Route: 048
     Dates: start: 20100301
  2. WELLBUTRIN [Suspect]
     Dates: end: 20100201

REACTIONS (5)
  - APHONIA [None]
  - ASTHENIA [None]
  - HYPERSENSITIVITY [None]
  - HYPERSOMNIA [None]
  - PAIN [None]
